FAERS Safety Report 10034064 (Version 1)
Quarter: 2014Q1

REPORT INFORMATION
  Report Type: Spontaneous
  Country: US (occurrence: None)
  Receive Date: 20140324
  Receipt Date: 20140324
  Transmission Date: 20141002
  Serious: Yes (Life-Threatening, Hospitalization, Disabling)
  Sender: FDA-Public Use
  Company Number: None

PATIENT
  Age: 45 Year
  Sex: Male
  Weight: 122.47 kg

DRUGS (2)
  1. TESTOSTERONE CYP [Suspect]
     Indication: BLOOD TESTOSTERONE DECREASED
     Dosage: 1 ML ?ONCE A WEEK ?INTO THE MUSCLE??04/2013 TON03/21/2013
  2. DEPO TESTOSTERONE [Suspect]
     Indication: BLOOD TESTOSTERONE DECREASED
     Dosage: 200 MG?ONE SHOT PER WEEK?INTO THE MUSCLE??04/16/2013 TO 03/14/2013

REACTIONS (3)
  - Migraine [None]
  - Blindness [None]
  - Superior sagittal sinus thrombosis [None]
